FAERS Safety Report 10662079 (Version 5)
Quarter: 2015Q1

REPORT INFORMATION
  Report Type: Spontaneous
  Country: US (occurrence: None)
  Receive Date: 20141216
  Receipt Date: 20150320
  Transmission Date: 20150720
  Serious: Yes (Hospitalization, Other)
  Sender: FDA-Public Use
  Company Number: ADR-2014-01999

PATIENT
  Age: 55 Year
  Sex: Female

DRUGS (3)
  1. ORAL BACLOFEN [Suspect]
     Active Substance: BACLOFEN
     Dosage: 10 MG, SEE B5?
  2. BACLOFEN. [Suspect]
     Active Substance: BACLOFEN
     Indication: MUSCLE SPASTICITY
     Dosage: 556.5 MCG/DAY
     Dates: end: 20141130
  3. GABLOFEN [Suspect]
     Active Substance: BACLOFEN
     Dosage: 30 MG, EVERY EVENING ?

REACTIONS (17)
  - Device battery issue [None]
  - Headache [None]
  - Device failure [None]
  - Injury associated with device [None]
  - Eye swelling [None]
  - Device power source issue [None]
  - Implant site pain [None]
  - Device leakage [None]
  - Hypersensitivity [None]
  - Device dislocation [None]
  - Mental status changes [None]
  - Implant site swelling [None]
  - Muscle spasms [None]
  - Pelvic pain [None]
  - Blood pressure increased [None]
  - Nausea [None]
  - Haemorrhage [None]
